FAERS Safety Report 8258732-3 (Version None)
Quarter: 2012Q2

REPORT INFORMATION
  Report Type: 
  Country: None (occurrence: None)
  Receive Date: 20120404
  Receipt Date: 20120404
  Transmission Date: 20120825
  Serious: Yes (Other)
  Sender: FDA-Public Use
  Company Number: None

PATIENT
  Sex: Female

DRUGS (2)
  1. AMLODIPINE BESYLATE [Suspect]
     Indication: HYPERTENSION
     Dosage: 1 DAILY
     Route: 048
     Dates: start: 20110701, end: 20120321
  2. ESTROGEN [Concomitant]

REACTIONS (4)
  - GASTROINTESTINAL INFLAMMATION [None]
  - PYREXIA [None]
  - GASTROINTESTINAL PAIN [None]
  - INFECTION [None]
